FAERS Safety Report 12476339 (Version 1)
Quarter: 2016Q2

REPORT INFORMATION
  Report Type: Spontaneous
  Country: US (occurrence: US)
  Receive Date: 20160617
  Receipt Date: 20160617
  Transmission Date: 20160815
  Serious: Yes (Other)
  Sender: FDA-Public Use
  Company Number: US-BAYER-2016-114343

PATIENT
  Age: 34 Year
  Sex: Female

DRUGS (2)
  1. YASMIN [Suspect]
     Active Substance: DROSPIRENONE\ETHINYL ESTRADIOL
     Indication: PYODERMA GANGRENOSUM
     Dosage: UNK
     Route: 048
     Dates: start: 2010, end: 201412
  2. PREDNISONE. [Concomitant]
     Active Substance: PREDNISONE
     Indication: PYODERMA GANGRENOSUM
     Dosage: 25 MG, QD
     Route: 048

REACTIONS (5)
  - Off label use [None]
  - Menstruation delayed [None]
  - Withdrawal bleed [None]
  - Pulmonary embolism [None]
  - Therapeutic response unexpected [None]

NARRATIVE: CASE EVENT DATE: 2010
